FAERS Safety Report 8445021-7 (Version None)
Quarter: 2012Q2

REPORT INFORMATION
  Report Type: 
  Country: None (occurrence: None)
  Receive Date: 20120606
  Receipt Date: 20120529
  Transmission Date: 20120825
  Serious: Yes (Other)
  Sender: FDA-Public Use
  Company Number: 2012SP029142

PATIENT
  Age: 44 Year
  Sex: Male

DRUGS (2)
  1. ROCURONIUM BROMIDE [Suspect]
     Indication: HYPOTONIA
     Dosage: 40 MG;QD;IV
     Route: 042
     Dates: start: 20120501, end: 20120501
  2. ROCURONIUM BROMIDE [Suspect]
     Indication: POSTOPERATIVE CARE
     Dosage: 40 MG;QD;IV
     Route: 042
     Dates: start: 20120501, end: 20120501

REACTIONS (1)
  - NEUROMUSCULAR BLOCK PROLONGED [None]
